FAERS Safety Report 7769077-X (Version None)
Quarter: 2011Q3

REPORT INFORMATION
  Report Type: 
  Country: None (occurrence: None)
  Receive Date: 20110920
  Receipt Date: 20110909
  Transmission Date: 20111222
  Serious: No
  Sender: FDA-Public Use
  Company Number: 2011-1714

PATIENT
  Age: 44 Year
  Sex: Female

DRUGS (3)
  1. PAPAYA EXTRACT (PAPAYA ENZYME) [Concomitant]
  2. BOTULINUM TOXIN TYPE A [Suspect]
     Indication: SKIN WRINKLING
     Dosage: 62.5 UNITS (62.5 UNITS,SINGLE CYCLE),INTRAMUSCULAR
     Route: 030
     Dates: start: 20110419, end: 20110419
  3. BOTULINUM TOXIN TYPE A [Suspect]
     Indication: OFF LABEL USE
     Dosage: 62.5 UNITS (62.5 UNITS,SINGLE CYCLE),INTRAMUSCULAR
     Route: 030
     Dates: start: 20110419, end: 20110419

REACTIONS (2)
  - DYSPHAGIA [None]
  - SYNCOPE [None]
